FAERS Safety Report 5409216-9 (Version None)
Quarter: 2007Q3

REPORT INFORMATION
  Report Type: 
  Country: None (occurrence: None)
  Receive Date: 20070807
  Receipt Date: 20070807
  Transmission Date: 20080115
  Serious: Yes (Other)
  Sender: FDA-Public Use
  Company Number: None

PATIENT
  Sex: Female

DRUGS (3)
  1. ZYRTEC [Suspect]
     Dosage: 10MG QD PO
     Route: 048
     Dates: start: 20070508, end: 20070605
  2. ZYRTEC [Suspect]
     Dosage: 10MG QD PO
     Route: 048
     Dates: start: 20070620, end: 20070713
  3. NASACORT AQ [Concomitant]

REACTIONS (1)
  - ARTHRITIS [None]
